FAERS Safety Report 24836731 (Version 1)
Quarter: 2025Q1

REPORT INFORMATION
  Report Type: Report from Study
  Country: US (occurrence: US)
  Receive Date: 20250113
  Receipt Date: 20250113
  Transmission Date: 20250408
  Serious: Yes (Other)
  Sender: ALEXION PHARMACEUTICALS
  Company Number: US-ASTRAZENECA-202501USA003926US

PATIENT

DRUGS (1)
  1. BENRALIZUMAB [Suspect]
     Active Substance: BENRALIZUMAB
     Indication: Asthma
     Dosage: 30 MILLIGRAM, Q4W

REACTIONS (10)
  - Nephrolithiasis [Unknown]
  - Urinary retention [Unknown]
  - Wheezing [Recovering/Resolving]
  - Asthma [Not Recovered/Not Resolved]
  - Chest discomfort [Unknown]
  - Cough [Unknown]
  - Heart rate increased [Unknown]
  - Dyspnoea [Unknown]
  - Back pain [Unknown]
  - Dysuria [Unknown]
